FAERS Safety Report 6170415-2 (Version None)
Quarter: 2009Q2

REPORT INFORMATION
  Report Type: 
  Country: None (occurrence: None)
  Receive Date: 20090428
  Receipt Date: 20090423
  Transmission Date: 20091009
  Serious: Yes (Other)
  Sender: FDA-Public Use
  Company Number: US-BAYER-200911302BCC

PATIENT
  Age: 75 Year
  Sex: Female
  Weight: 61 kg

DRUGS (6)
  1. ALEVE (CAPLET) [Suspect]
     Indication: RHEUMATOID ARTHRITIS
     Dosage: UNIT DOSE: 220 MG
     Route: 048
     Dates: start: 20081101, end: 20090101
  2. PLAQUENIL [Concomitant]
  3. LAPRESA [Concomitant]
  4. CITRACAL [Concomitant]
  5. ASPIRIN [Concomitant]
  6. PREDNISONE TAB [Concomitant]

REACTIONS (4)
  - DIZZINESS [None]
  - HEART RATE DECREASED [None]
  - HYPERTENSION [None]
  - VISION BLURRED [None]
